FAERS Safety Report 20188545 (Version 1)
Quarter: 2021Q4

REPORT INFORMATION
  Report Type: Spontaneous
  Country: US (occurrence: None)
  Receive Date: 20211215
  Receipt Date: 20211215
  Transmission Date: 20220303
  Serious: Yes (Hospitalization)
  Sender: FDA-Public Use
  Company Number: None

PATIENT
  Age: 60 Year
  Sex: Male

DRUGS (14)
  1. EMGALITY [Suspect]
     Active Substance: GALCANEZUMAB-GNLM
     Indication: Migraine
     Dosage: FREQUENCY : MONTHLY;?
     Route: 058
  2. ZOLOFT [Concomitant]
     Active Substance: SERTRALINE HYDROCHLORIDE
  3. CLOPIDOGREL 75 [Concomitant]
  4. SYMBICORT 160/4/5MCG [Concomitant]
  5. ASPIRIN [Concomitant]
     Active Substance: ASPIRIN
  6. HYDROCODONE/APAP 7.5/325MG [Concomitant]
  7. NITROSTAT [Concomitant]
     Active Substance: NITROGLYCERIN
  8. SPIRIVA 18MCG [Concomitant]
  9. TRAZODONE 150MG [Concomitant]
  10. SPORANOX [Concomitant]
     Active Substance: ITRACONAZOLE
  11. BUSPIRONE [Concomitant]
     Active Substance: BUSPIRONE HYDROCHLORIDE
  12. GABAPENTIN [Concomitant]
     Active Substance: GABAPENTIN
  13. FERROUS SULFATE 324 [Concomitant]
  14. DUPIXENT [Concomitant]
     Active Substance: DUPILUMAB

REACTIONS (1)
  - Fall [None]

NARRATIVE: CASE EVENT DATE: 20211213
